FAERS Safety Report 9707296 (Version 1)
Quarter: 2013Q4

REPORT INFORMATION
  Report Type: Spontaneous
  Country: US (occurrence: US)
  Receive Date: 20131125
  Receipt Date: 20131125
  Transmission Date: 20140711
  Serious: No
  Sender: FDA-Public Use
  Company Number: US-GLAXOSMITHKLINE-A0998605A

PATIENT
  Age: 73 Year
  Sex: Female

DRUGS (1)
  1. FLOVENT DISKUS [Suspect]
     Dosage: 50MCG UNKNOWN
     Route: 055
     Dates: start: 20081221

REACTIONS (2)
  - Panic reaction [Unknown]
  - Product quality issue [Unknown]
